FAERS Safety Report 8274075-6 (Version None)
Quarter: 2012Q2

REPORT INFORMATION
  Report Type: 
  Country: None (occurrence: None)
  Receive Date: 20120409
  Receipt Date: 20120405
  Transmission Date: 20120825
  Serious: Yes (Hospitalization)
  Sender: FDA-Public Use
  Company Number: ADR-2009-7794

PATIENT
  Age: 13 Year
  Sex: Male

DRUGS (1)
  1. LIORESAL [Suspect]
     Indication: MUSCLE SPASTICITY
     Dosage: 300 - 400 MCG, DAILY, I
     Route: 037

REACTIONS (10)
  - GRANULOMA [None]
  - MEDICAL DEVICE SITE REACTION [None]
  - INSOMNIA [None]
  - CLONUS [None]
  - TREMOR [None]
  - HYPERTONIA [None]
  - PAIN [None]
  - DEVICE MALFUNCTION [None]
  - MUSCLE TIGHTNESS [None]
  - SCAR [None]
